FAERS Safety Report 21626088 (Version 1)
Quarter: 2022Q4

REPORT INFORMATION
  Report Type: Spontaneous
  Country: US (occurrence: None)
  Receive Date: 20221122
  Receipt Date: 20221122
  Transmission Date: 20230112
  Serious: No
  Sender: FDA-Public Use
  Company Number: US-ROCHE-3038325

PATIENT
  Sex: Male
  Weight: 19.522 kg

DRUGS (6)
  1. PULMOZYME [Suspect]
     Active Substance: DORNASE ALFA
     Indication: Cystic fibrosis lung
     Dosage: INHALE 2.5 MG VIA NEBULIZER ; ONGOING: YES, 1 MG/ ML 2.5 ML
     Route: 045
     Dates: start: 20190410
  2. ORKAMBI [Concomitant]
     Active Substance: IVACAFTOR\LUMACAFTOR
     Route: 048
     Dates: start: 20200428
  3. CREON [Concomitant]
     Active Substance: PANCRELIPASE AMYLASE\PANCRELIPASE LIPASE\PANCRELIPASE PROTEASE
     Route: 048
     Dates: start: 20190502
  4. LANSOPRAZOLE [Concomitant]
     Active Substance: LANSOPRAZOLE
     Route: 048
     Dates: start: 20200428
  5. URSODIOL [Concomitant]
     Active Substance: URSODIOL
     Route: 048
     Dates: start: 20190502
  6. VENTOLIN HFA [Concomitant]
     Active Substance: ALBUTEROL SULFATE
     Route: 045
     Dates: start: 20190502

REACTIONS (2)
  - Product dose omission issue [Unknown]
  - No adverse event [Unknown]
